FAERS Safety Report 6969679-4 (Version None)
Quarter: 2010Q3

REPORT INFORMATION
  Report Type: 
  Country: None (occurrence: None)
  Receive Date: 20100908
  Receipt Date: 20100830
  Transmission Date: 20110219
  Serious: Yes (Hospitalization)
  Sender: FDA-Public Use
  Company Number: US-US-EMD SERONO, INC.-7004195

PATIENT
  Sex: Female
  Weight: 92 kg

DRUGS (11)
  1. REBIF [Suspect]
     Indication: MULTIPLE SCLEROSIS
     Route: 058
     Dates: start: 20090810, end: 20100728
  2. REBIF [Suspect]
     Route: 058
     Dates: start: 20100816
  3. GABAPENTIN [Concomitant]
     Indication: MULTIPLE SCLEROSIS
     Route: 048
     Dates: start: 20090401
  4. GABAPENTIN [Concomitant]
     Indication: NERVOUS SYSTEM DISORDER
  5. MICRONOR [Concomitant]
     Indication: CONTRACEPTION
     Route: 048
     Dates: start: 20090201, end: 20100728
  6. IBUPROFEN [Concomitant]
     Indication: HEADACHE
     Route: 048
     Dates: start: 20060301
  7. CYCLOBENZAPRINE [Concomitant]
     Indication: MUSCLE SPASMS
     Route: 048
     Dates: start: 20090401
  8. CYCLOBENZAPRINE [Concomitant]
     Indication: PAIN
  9. HYDROXYZINE [Concomitant]
     Indication: PRURITUS
     Route: 048
     Dates: start: 20040601
  10. HYDROXYZINE [Concomitant]
     Indication: ANXIETY
  11. FOLIC ACID SUPPLEMENT [Concomitant]
     Indication: VITAMIN SUPPLEMENTATION
     Route: 048

REACTIONS (22)
  - ADVERSE DRUG REACTION [None]
  - ANXIETY [None]
  - CARDIAC SEPTAL DEFECT [None]
  - DYSPEPSIA [None]
  - DYSPNOEA [None]
  - EAR INFECTION [None]
  - FATIGUE [None]
  - HEART RATE IRREGULAR [None]
  - HYPERTENSION [None]
  - INFLUENZA [None]
  - INJECTION SITE ERYTHEMA [None]
  - INJECTION SITE HAEMATOMA [None]
  - INJECTION SITE PAIN [None]
  - MONONUCLEOSIS SYNDROME [None]
  - OEDEMA PERIPHERAL [None]
  - PAIN [None]
  - PHARYNGEAL OEDEMA [None]
  - PHARYNGITIS STREPTOCOCCAL [None]
  - RASH [None]
  - STRESS [None]
  - SWELLING FACE [None]
  - URTICARIA [None]
